FAERS Safety Report 15616283 (Version 1)
Quarter: 2018Q4

REPORT INFORMATION
  Report Type: Spontaneous
  Country: FR (occurrence: FR)
  Receive Date: 20181114
  Receipt Date: 20181114
  Transmission Date: 20190205
  Serious: Yes (Death)
  Sender: FDA-Public Use
  Company Number: FR-TEVA-2018-FR-974707

PATIENT
  Age: 77 Year
  Sex: Female
  Weight: 97 kg

DRUGS (16)
  1. FUROSEMIDE. [Suspect]
     Active Substance: FUROSEMIDE
     Indication: CARDIAC FAILURE
     Route: 048
  2. CALTRATE [Concomitant]
     Active Substance: CALCIUM CARBONATE
  3. NOVORAPID [Concomitant]
     Active Substance: INSULIN ASPART
  4. BISOPROLOL (HEMIFUMARATE DE) [Concomitant]
     Active Substance: BISOPROLOL FUMARATE
  5. ATORVASTATINE [Concomitant]
     Active Substance: ATORVASTATIN
  6. LEVOTHYROXINE SODIQUE [Concomitant]
     Active Substance: LEVOTHYROXINE SODIUM
  7. LANTUS [Concomitant]
     Active Substance: INSULIN GLARGINE
  8. PREVISCAN 20 MG, COMPRIME SECABLE [Concomitant]
     Active Substance: FLUINDIONE
  9. RENVELA [Concomitant]
     Active Substance: SEVELAMER CARBONATE
  10. MANIDIPINE (CHLORHYDRATE DE) [Concomitant]
  11. CORDARONE [Concomitant]
     Active Substance: AMIODARONE HYDROCHLORIDE
  12. ALLOPURINOL. [Concomitant]
     Active Substance: ALLOPURINOL
  13. KETUM 2,5 POUR CENT, GEL [Suspect]
     Active Substance: KETOPROFEN
     Indication: ARTHRALGIA
     Route: 061
     Dates: start: 201512, end: 201512
  14. LASILIX SPECIAL 500 MG, COMPRIME SECABLE [Concomitant]
     Active Substance: FUROSEMIDE
  15. CHOLECALCIFEROL [Concomitant]
     Active Substance: CHOLECALCIFEROL
  16. REPAGLINIDE. [Concomitant]
     Active Substance: REPAGLINIDE

REACTIONS (1)
  - Acute kidney injury [Fatal]

NARRATIVE: CASE EVENT DATE: 201601
